FAERS Safety Report 25409574 (Version 1)
Quarter: 2025Q2

REPORT INFORMATION
  Report Type: Spontaneous
  Country: US (occurrence: US)
  Receive Date: 20250607
  Receipt Date: 20250607
  Transmission Date: 20250716
  Serious: No
  Sender: RIGEL PHARMACEUTICALS
  Company Number: US-RIGEL PHARMACEUTICALS, INC.-20241100184

PATIENT
  Age: 82 Year
  Sex: Female
  Weight: 55.338 kg

DRUGS (8)
  1. TAVALISSE [Suspect]
     Active Substance: FOSTAMATINIB
     Indication: Immune thrombocytopenia
     Dosage: 100 MG, BID
     Route: 048
     Dates: start: 20241105
  2. TAVALISSE [Suspect]
     Active Substance: FOSTAMATINIB
     Dosage: 1.5 (100 MG) TABLET
     Route: 048
     Dates: start: 202411
  3. CARVEDILOL [Concomitant]
     Active Substance: CARVEDILOL
     Indication: Product used for unknown indication
  4. LEVOTHYROXINE [Concomitant]
     Active Substance: LEVOTHYROXINE
     Indication: Product used for unknown indication
  5. TOUJEO [Concomitant]
     Active Substance: INSULIN GLARGINE
     Indication: Product used for unknown indication
  6. HUMALOG [Concomitant]
     Active Substance: INSULIN LISPRO
     Indication: Product used for unknown indication
  7. ALPRAZOLAM [Concomitant]
     Active Substance: ALPRAZOLAM
     Indication: Product used for unknown indication
  8. PROMACTA [Suspect]
     Active Substance: ELTROMBOPAG OLAMINE
     Indication: Product used for unknown indication

REACTIONS (4)
  - Blood glucose decreased [Unknown]
  - Dry mouth [Unknown]
  - Diarrhoea [Unknown]
  - Wrong technique in product usage process [Unknown]

NARRATIVE: CASE EVENT DATE: 20241101
